FAERS Safety Report 21757515 (Version 1)
Quarter: 2022Q4

REPORT INFORMATION
  Report Type: Spontaneous
  Country: TR (occurrence: TR)
  Receive Date: 20221221
  Receipt Date: 20221221
  Transmission Date: 20230113
  Serious: Yes (Other)
  Sender: FDA-Public Use
  Company Number: TR-STRIDES ARCOLAB LIMITED-2022SP017107

PATIENT
  Age: 16 Year
  Sex: Female

DRUGS (11)
  1. CYCLOSPORINE [Suspect]
     Active Substance: CYCLOSPORINE
     Indication: Prophylaxis against graft versus host disease
     Dosage: UNK; ADJUSTED TO THERAPEUTIC RANGE OF 100-200 NG/ML
     Route: 065
  2. MYCOPHENOLATE MOFETIL [Suspect]
     Active Substance: MYCOPHENOLATE MOFETIL
     Indication: Prophylaxis against graft versus host disease
     Dosage: 1.2 G/M2 STARTED ON DAY 1
     Route: 065
  3. MYCOPHENOLATE MOFETIL [Suspect]
     Active Substance: MYCOPHENOLATE MOFETIL
     Dosage: UNK; RESTARTED
     Route: 065
  4. METHOTREXATE [Suspect]
     Active Substance: METHOTREXATE
     Indication: Prophylaxis against graft versus host disease
     Dosage: 10 MILLIGRAM/SQ. METER; ON DAYS 1, 3, AND 6
     Route: 065
  5. CARBOPLATIN [Suspect]
     Active Substance: CARBOPLATIN
     Indication: B-cell lymphoma
     Dosage: UNK; TREATED WITH 5 BLOCKS (AS A PART OF R-ICE REGIMEN)
     Route: 065
  6. ETOPOSIDE [Suspect]
     Active Substance: ETOPOSIDE
     Indication: B-cell lymphoma
     Dosage: UNK; TREATED WITH 5 BLOCKS (AS A PART OF R-ICE REGIMEN)
     Route: 065
  7. SIROLIMUS [Suspect]
     Active Substance: SIROLIMUS
     Indication: Bone marrow conditioning regimen
     Dosage: UNK; AS A PART OF CONDITIONING REGIMEN
     Route: 065
  8. SIROLIMUS [Suspect]
     Active Substance: SIROLIMUS
     Indication: Prophylaxis against graft versus host disease
     Dosage: UNK; ADJUSTED TO 5-10 NG/ML FOR GVHD PROPHYLAXIS
     Route: 065
  9. RITUXIMAB [Suspect]
     Active Substance: RITUXIMAB
     Indication: B-cell lymphoma
     Dosage: UNK; TREATED WITH 5 BLOCKS (AS A PART OF R-ICE REGIMEN)
     Route: 065
  10. RITUXIMAB [Suspect]
     Active Substance: RITUXIMAB
     Indication: Bone marrow conditioning regimen
     Dosage: 375 MILLIGRAM/SQ. METER; ON DAY -11 (AS A PART OF CONDITIONING REGIMEN)
     Route: 065
  11. IFOSFAMIDE [Suspect]
     Active Substance: IFOSFAMIDE
     Indication: B-cell lymphoma
     Dosage: UNK; TREATED WITH 5 BLOCKS (AS A PART OF R-ICE REGIMEN)
     Route: 065

REACTIONS (6)
  - Renal impairment [Unknown]
  - Graft versus host disease in skin [Recovered/Resolved]
  - Graft versus host disease in gastrointestinal tract [Recovered/Resolved]
  - Therapy partial responder [Unknown]
  - Colitis [Unknown]
  - Off label use [Unknown]
